FAERS Safety Report 6852860-2 (Version None)
Quarter: 2010Q3

REPORT INFORMATION
  Report Type: 
  Country: None (occurrence: None)
  Receive Date: 20100717
  Receipt Date: 20071127
  Transmission Date: 20110219
  Serious: No
  Sender: FDA-Public Use
  Company Number: US-PFIZER INC-2007099828

PATIENT
  Sex: Female
  Weight: 67.1 kg

DRUGS (6)
  1. CHANTIX [Suspect]
     Indication: SMOKING CESSATION THERAPY
     Dates: start: 20070901
  2. DRUG, UNSPECIFIED [Concomitant]
     Indication: THYROID DISORDER
  3. TYLENOL [Concomitant]
  4. ALL OTHER THERAPEUTIC PRODUCTS [Concomitant]
     Indication: ARTHRITIS
  5. CYANOCOBALAMIN [Concomitant]
     Indication: PERNICIOUS ANAEMIA
     Route: 051
  6. ANTIDEPRESSANTS [Concomitant]

REACTIONS (1)
  - FATIGUE [None]
